FAERS Safety Report 7088373-5 (Version None)
Quarter: 2010Q4

REPORT INFORMATION
  Report Type: 
  Country: None (occurrence: None)
  Receive Date: 20101028
  Receipt Date: 20101018
  Transmission Date: 20110411
  Serious: Yes (Other)
  Sender: FDA-Public Use
  Company Number: 020525

PATIENT
  Age: 43 Year
  Sex: Female

DRUGS (1)
  1. KEPPRA [Suspect]
     Dates: end: 20101018

REACTIONS (1)
  - MULTIPLE SCLEROSIS [None]
